FAERS Safety Report 20824954 (Version 1)
Quarter: 2022Q2

REPORT INFORMATION
  Report Type: Other
  Country: US (occurrence: None)
  Receive Date: 20220513
  Receipt Date: 20220513
  Transmission Date: 20220721
  Serious: Yes (Hospitalization)
  Sender: FDA-Public Use
  Company Number: US-ROCHE-3090547

PATIENT
  Sex: Female
  Weight: 98.064 kg

DRUGS (10)
  1. OCREVUS [Suspect]
     Active Substance: OCRELIZUMAB
     Indication: Relapsing-remitting multiple sclerosis
     Dosage: 300 MG EVERY 2 WEEKS STARTED ABOUT 2 YEARS AGO
     Route: 042
     Dates: end: 2020
  2. DIAZEPAM [Concomitant]
     Active Substance: DIAZEPAM
     Indication: Depression
     Dosage: STARTED ABOUT 2 YEARS AGO BEFORE STARTING OCREVUS
     Route: 048
  3. BACLOFEN [Concomitant]
     Active Substance: BACLOFEN
     Indication: Muscle spasticity
     Dosage: STARTED ABOUT 2 YEARS AGO A LITTLE BEFORE SHE STARTED OCREVUS
     Route: 048
  4. METAMUCIL [Concomitant]
     Active Substance: PLANTAGO SEED
     Dosage: STARTED ABOUT 2 YEARS AGO TAKES 2 CAPSULES 3 TIMES PER DAY
     Route: 048
  5. VITAMIN C [Concomitant]
     Active Substance: ASCORBIC ACID
     Dosage: STARTED ABOUT 2 YEARS AGO
     Route: 048
  6. VITAMIN D3 [Concomitant]
     Active Substance: CHOLECALCIFEROL
     Dosage: STARTED ABOUT 2 YEARS AGO
     Route: 048
  7. VITAMIN E [Concomitant]
     Active Substance: .ALPHA.-TOCOPHEROL
     Dosage: STARTED ABOUT 2 YEARS AGO
     Route: 048
  8. FISH OIL [Concomitant]
     Active Substance: FISH OIL
     Dosage: STARTED ABOUT 2 YEARS AGO
     Route: 048
  9. JANSSEN COVID-19 VACCINE [Concomitant]
     Active Substance: AD26.COV2.S
     Dosage: ONE TIME DOSE
     Route: 030
     Dates: start: 20210318
  10. PFIZER-BIONTECH COVID-19 VACCINE [Concomitant]
     Active Substance: TOZINAMERAN
     Route: 030
     Dates: start: 20220130

REACTIONS (2)
  - Urinary tract infection [Recovered/Resolved]
  - Rash [Recovered/Resolved]
